FAERS Safety Report 15946267 (Version 3)
Quarter: 2019Q1

REPORT INFORMATION
  Report Type: Report from Study
  Country: IT (occurrence: IT)
  Receive Date: 20190211
  Receipt Date: 20190330
  Transmission Date: 20190417
  Serious: Yes (Life-Threatening, Other)
  Sender: FDA-Public Use
  Company Number: IT-AUROBINDO-AUR-APL-2019-002036

PATIENT

DRUGS (4)
  1. CETIRIZINE [Suspect]
     Active Substance: CETIRIZINE HYDROCHLORIDE
     Indication: CHRONIC MYELOID LEUKAEMIA
     Dosage: 10 MILLIGRAM, ONCE A DAY, DAILY
     Route: 065
  2. IMATINIB MESILATE [Suspect]
     Active Substance: IMATINIB MESYLATE
     Indication: SYSTEMIC SCLERODERMA
     Dosage: 300 MILLIGRAM, ONCE A DAY
     Route: 065
  3. IMATINIB MESILATE [Suspect]
     Active Substance: IMATINIB MESYLATE
     Dosage: 200 MILLIGRAM, ONCE A DAY,RESTARTED AT A LOWER DOSE
     Route: 065
  4. IMATINIB MESILATE [Suspect]
     Active Substance: IMATINIB MESYLATE
     Indication: CHRONIC MYELOID LEUKAEMIA
     Dosage: 400 MILLIGRAM, ONCE A DAY
     Route: 065

REACTIONS (4)
  - Rash erythematous [Recovered/Resolved]
  - Hypersensitivity [Recovered/Resolved]
  - Rash pruritic [Recovered/Resolved]
  - Drug hypersensitivity [Recovered/Resolved]
